FAERS Safety Report 9249934 (Version 2)
Quarter: 2013Q3

REPORT INFORMATION
  Report Type: Other
  Country: PT (occurrence: PT)
  Receive Date: 20130423
  Receipt Date: 20130709
  Transmission Date: 20140515
  Serious: Yes (Other)
  Sender: FDA-Public Use
  Company Number: PT-BRISTOL-MYERS SQUIBB COMPANY-18786806

PATIENT
  Age: 43 Year
  Sex: Male

DRUGS (1)
  1. ENTECAVIR [Suspect]
     Indication: HEPATITIS B
     Dates: start: 20120323

REACTIONS (3)
  - Transaminases increased [Recovering/Resolving]
  - Coagulopathy [Recovering/Resolving]
  - Liver transplant [Unknown]
